FAERS Safety Report 8768584 (Version 2)
Quarter: 2013Q1

REPORT INFORMATION
  Report Type: Spontaneous
  Country: US (occurrence: US)
  Receive Date: 20120905
  Receipt Date: 20130109
  Transmission Date: 20140127
  Serious: No
  Sender: FDA-Public Use
  Company Number: US-009507513-1208USA011209

PATIENT
  Sex: Female

DRUGS (8)
  1. VICTRELIS [Suspect]
     Indication: HEPATITIS C
     Dosage: 800 MG, TID
     Route: 048
     Dates: start: 20120809
  2. RIBASPHERE [Suspect]
  3. PEGASYS [Suspect]
  4. FUROSEMIDE [Concomitant]
  5. CLONAZEPAM [Concomitant]
  6. ASCORBIC ACID [Concomitant]
  7. VITAMINS (UNSPECIFIED) [Concomitant]
  8. VITAMIN B COMPLEX [Concomitant]

REACTIONS (1)
  - Fatigue [Not Recovered/Not Resolved]
